FAERS Safety Report 5024234-0 (Version None)
Quarter: 2006Q2

REPORT INFORMATION
  Report Type: 
  Country: None (occurrence: None)
  Receive Date: 20060426
  Receipt Date: 20060223
  Transmission Date: 20061013
  Serious: Yes (Other)
  Sender: FDA-Public Use
  Company Number: 2005129767

PATIENT
  Age: 53 Year
  Sex: Male
  Weight: 92.5338 kg

DRUGS (7)
  1. LYRICA [Suspect]
     Indication: NEUROPATHY PERIPHERAL
     Dosage: 150 MG (75 MG, 2 IN 1 D), ORAL
     Route: 048
     Dates: start: 20050912, end: 20050912
  2. NEURONTIN [Concomitant]
  3. RELAFEN [Concomitant]
  4. FOLTX (CYANOCOBALAMIN, FOLIC ACID, PYRIDOXINE) [Concomitant]
  5. ZOLOFT [Concomitant]
  6. LASIX [Concomitant]
  7. TYLOX (OXYCODONE HYDROCHLORIDE, PARACETAMOL) [Concomitant]

REACTIONS (7)
  - CARDIAC DISORDER [None]
  - DYSURIA [None]
  - NERVOUSNESS [None]
  - NIGHTMARE [None]
  - OEDEMA [None]
  - URINE FLOW DECREASED [None]
  - WHEEZING [None]
